FAERS Safety Report 5135574-9 (Version None)
Quarter: 2006Q4

REPORT INFORMATION
  Report Type: 
  Country: None (occurrence: None)
  Receive Date: 20061026
  Receipt Date: 20061016
  Transmission Date: 20070319
  Serious: Yes (Hospitalization)
  Sender: FDA-Public Use
  Company Number: HQWYE264518OCT06

PATIENT
  Sex: Female
  Weight: 57 kg

DRUGS (18)
  1. ENBREL [Suspect]
     Indication: RHEUMATOID ARTHRITIS
     Route: 058
     Dates: start: 20050822
  2. ALFAROL [Concomitant]
     Indication: OSTEOPOROSIS
     Route: 048
  3. PARIET [Concomitant]
     Indication: GASTRIC ULCER
     Route: 048
  4. PREDNISOLONE [Concomitant]
     Indication: RHEUMATOID ARTHRITIS
     Route: 048
  5. VOLTAREN [Concomitant]
     Indication: RHEUMATOID ARTHRITIS
     Route: 048
  6. ZOLPIDEM TARTRATE [Concomitant]
     Indication: INSOMNIA
     Route: 048
  7. LAC B [Concomitant]
     Indication: DIARRHOEA
     Route: 048
  8. GASMOTIN [Concomitant]
     Indication: GASTRITIS
     Route: 048
  9. LENDORMIN [Concomitant]
     Dosage: UNKNOWN
     Route: 048
  10. ALLOID [Concomitant]
     Dosage: UNKNOWN
     Route: 048
  11. UREPEARL [Concomitant]
     Dosage: UNKNOWN
     Route: 061
  12. TELEMINSOFT [Concomitant]
     Dosage: UNKNOWN
     Route: 054
  13. MAGNESIUM OXIDE [Concomitant]
     Dosage: UNKNOWN
     Route: 048
  14. KETOPROFEN [Concomitant]
     Indication: RHEUMATOID ARTHRITIS
     Dosage: UNKNOWN
     Route: 048
  15. HALCION [Concomitant]
     Dosage: UNKNOWN
     Route: 048
  16. ISODINE [Concomitant]
     Dosage: UNKNOWN
  17. AZUNOL [Concomitant]
     Dosage: UNKNOWN
  18. NEORAL [Concomitant]
     Indication: RHEUMATOID ARTHRITIS
     Route: 048
     Dates: start: 20050106, end: 20050824

REACTIONS (2)
  - ARTHRITIS REACTIVE [None]
  - VIRAL INFECTION [None]
